FAERS Safety Report 16842262 (Version 12)
Quarter: 2019Q4

REPORT INFORMATION
  Report Type: Report from Study
  Country: DE (occurrence: DE)
  Receive Date: 20190924
  Receipt Date: 20191223
  Transmission Date: 20200122
  Serious: Yes (Death, Hospitalization)
  Sender: FDA-Public Use
  Company Number: DE-ROCHE-2410267

PATIENT
  Age: 79 Year
  Sex: Female

DRUGS (15)
  1. ATEZOLIZUMAB. [Suspect]
     Active Substance: ATEZOLIZUMAB
     Indication: MALIGNANT NEOPLASM OF UNKNOWN PRIMARY SITE
     Dosage: DATE OF LAST DOSE: 03/SEP/2019
     Route: 041
     Dates: start: 20190903
  2. CARBOPLATIN. [Suspect]
     Active Substance: CARBOPLATIN
     Dosage: DATEOF LAST DOSE PRIOR TO SAE :03/SEP/2019
     Route: 042
     Dates: start: 20190813
  3. PACLITAXEL. [Suspect]
     Active Substance: PACLITAXEL
     Indication: MALIGNANT NEOPLASM OF UNKNOWN PRIMARY SITE
     Dosage: LAST DOSE (283.5) PRIOR TO SAE 03/SEP/2019 (283.5MG)
     Route: 042
     Dates: start: 20190719
  4. DEXAMETHASON [DEXAMETHASONE] [Concomitant]
     Active Substance: DEXAMETHASONE
     Indication: PROPHYLAXIS
     Route: 042
     Dates: start: 20190813
  5. GEMCITABINE. [Suspect]
     Active Substance: GEMCITABINE
     Indication: MALIGNANT NEOPLASM OF UNKNOWN PRIMARY SITE
     Dosage: DATE OF LAST DOSE:19/JUL/2019
     Route: 042
     Dates: start: 20190719
  6. KALIUMCHLORID [Concomitant]
     Active Substance: POTASSIUM CHLORIDE
     Indication: PROPHYLAXIS
     Route: 048
  7. APREPITANT. [Concomitant]
     Active Substance: APREPITANT
     Indication: PROPHYLAXIS
     Route: 048
     Dates: start: 20190813
  8. SIMVASTATIN. [Concomitant]
     Active Substance: SIMVASTATIN
     Route: 048
  9. CEFTRIAXON [Concomitant]
     Active Substance: CEFTRIAXONE
     Route: 065
     Dates: start: 20190912, end: 20190919
  10. TILIDIN [Concomitant]
     Active Substance: NALOXONE HYDROCHLORIDE\TILIDINE HYDROCHLORIDE
     Route: 048
  11. CARBOPLATIN. [Suspect]
     Active Substance: CARBOPLATIN
     Indication: MALIGNANT NEOPLASM OF UNKNOWN PRIMARY SITE
     Dosage: DATEOF LAST DOSE PRIOR TO SAE :03/SEP/2019 (457.5MG)
     Route: 042
     Dates: start: 20190712
  12. PANTOPRAZOL [PANTOPRAZOLE] [Concomitant]
     Active Substance: PANTOPRAZOLE
     Route: 048
  13. GRANISETRON [Concomitant]
     Active Substance: GRANISETRON
     Indication: PROPHYLAXIS
     Route: 042
     Dates: start: 20190813
  14. TAVOR (LORAZEPAM) [Concomitant]
     Active Substance: LORAZEPAM
     Route: 048
  15. CLEXANE [Concomitant]
     Active Substance: ENOXAPARIN SODIUM
     Route: 062

REACTIONS (4)
  - Fall [Unknown]
  - Hip fracture [Recovered/Resolved]
  - Renal failure [Fatal]
  - Circulatory collapse [Recovered/Resolved]

NARRATIVE: CASE EVENT DATE: 20190911
